FAERS Safety Report 9268632 (Version 5)
Quarter: 2013Q2

REPORT INFORMATION
  Report Type: Spontaneous
  Country: JP (occurrence: JP)
  Receive Date: 20130502
  Receipt Date: 20130625
  Transmission Date: 20140414
  Serious: Yes (Hospitalization, Disabling)
  Sender: FDA-Public Use
  Company Number: JP-B.I. PHARMACEUTICALS,INC./RIDGEFIELD-2013-BI-12424NB

PATIENT
  Age: 76 Year
  Sex: Male
  Weight: 59.1 kg

DRUGS (11)
  1. PRAZAXA [Suspect]
     Indication: ATRIAL FIBRILLATION
     Dosage: 220 MG
     Route: 048
     Dates: start: 20130405, end: 20130412
  2. TAKEPRON [Concomitant]
     Dosage: 15 MG
  3. CRAVIT [Concomitant]
     Route: 031
  4. ENSURE LIQUID [Concomitant]
     Route: 065
  5. FLIVAS OD [Concomitant]
     Indication: DYSURIA
     Dosage: 75 MG
     Route: 048
     Dates: start: 20130411, end: 20130412
  6. MARZULENE-S [Concomitant]
     Dosage: 1.5 G
     Route: 048
     Dates: start: 20130410, end: 20130412
  7. TOUGHMAC E [Concomitant]
     Dosage: 2 G
     Route: 048
     Dates: start: 20130410, end: 20130412
  8. BIO-THREE [Concomitant]
     Dosage: 2 G
     Route: 048
     Dates: start: 20130410, end: 20130412
  9. OLMETEC [Concomitant]
     Indication: HYPERTENSION
     Dosage: 20 MG
     Route: 048
     Dates: end: 20130412
  10. ATELEC [Concomitant]
     Indication: HYPERTENSION
     Dosage: 5 MG
     Route: 048
     Dates: end: 20130412
  11. FOIPAN [Concomitant]
     Dosage: 100 MG
     Route: 048
     Dates: end: 20130412

REACTIONS (2)
  - Embolic stroke [Recovered/Resolved with Sequelae]
  - Drug effect incomplete [Unknown]
